FAERS Safety Report 12509187 (Version 1)
Quarter: 2016Q2

REPORT INFORMATION
  Report Type: Spontaneous
  Country: IT (occurrence: IT)
  Receive Date: 20160629
  Receipt Date: 20160629
  Transmission Date: 20160815
  Serious: Yes (Other)
  Sender: FDA-Public Use
  Company Number: IT-PFIZER INC-2016072306

PATIENT
  Age: 38 Year
  Sex: Female

DRUGS (4)
  1. DOCETAXEL. [Suspect]
     Active Substance: DOCETAXEL
     Dosage: UNK
     Dates: start: 20120217, end: 20120309
  2. PEMETREXED [Suspect]
     Active Substance: PEMETREXED
     Dosage: UNK
     Dates: start: 20120402, end: 20120807
  3. CISPLATIN. [Suspect]
     Active Substance: CISPLATIN
     Dosage: UNK
     Dates: start: 20120402, end: 2012
  4. CISPLATIN. [Suspect]
     Active Substance: CISPLATIN
     Dosage: UNK
     Dates: start: 20120217, end: 20120309

REACTIONS (2)
  - Ototoxicity [Unknown]
  - Chronic kidney disease [Not Recovered/Not Resolved]

NARRATIVE: CASE EVENT DATE: 20141015
